FAERS Safety Report 7982386-4 (Version None)
Quarter: 2011Q4

REPORT INFORMATION
  Report Type: 
  Country: None (occurrence: None)
  Receive Date: 20111215
  Receipt Date: 20111207
  Transmission Date: 20120403
  Serious: Yes (Other)
  Sender: FDA-Public Use
  Company Number: PHHY2011MX107529

PATIENT
  Sex: Male

DRUGS (4)
  1. ONBREZ [Suspect]
     Indication: CHRONIC OBSTRUCTIVE PULMONARY DISEASE
     Dosage: 1 DF, QD
     Dates: start: 20111124
  2. GLYBURIDE [Concomitant]
     Dosage: 3 TABLETS PER DAY
  3. CAPTOPRIL [Concomitant]
     Dosage: 1 TABLET PER DAY
  4. NITROGLYCERIN [Concomitant]
     Dosage: 1 PATCH PER DAY

REACTIONS (4)
  - THROAT TIGHTNESS [None]
  - DYSPNOEA [None]
  - APHAGIA [None]
  - APHONIA [None]
